FAERS Safety Report 7650535-3 (Version None)
Quarter: 2011Q3

REPORT INFORMATION
  Report Type: 
  Country: None (occurrence: None)
  Receive Date: 20110802
  Receipt Date: 20110725
  Transmission Date: 20111222
  Serious: Yes (Other)
  Sender: FDA-Public Use
  Company Number: PK-GLAXOSMITHKLINE-B0736087A

PATIENT
  Age: 20 Year
  Sex: Male

DRUGS (1)
  1. DUAC [Suspect]
     Indication: ACNE
     Route: 065

REACTIONS (4)
  - RASH PUSTULAR [None]
  - ERYTHEMA [None]
  - SWELLING [None]
  - PIGMENTATION DISORDER [None]
